FAERS Safety Report 6698910-8 (Version None)
Quarter: 2010Q2

REPORT INFORMATION
  Report Type: 
  Country: None (occurrence: None)
  Receive Date: 20100427
  Receipt Date: 20100423
  Transmission Date: 20101027
  Serious: Yes (Death, Hospitalization)
  Sender: FDA-Public Use
  Company Number: A0778521A

PATIENT
  Age: 70 Year
  Sex: Male

DRUGS (1)
  1. AVANDIA [Suspect]
     Dosage: 4MG PER DAY
     Route: 048
     Dates: start: 20000824, end: 20011120

REACTIONS (3)
  - CARDIAC ARREST [None]
  - CARDIAC FAILURE [None]
  - DEATH [None]
